FAERS Safety Report 6591342-2 (Version None)
Quarter: 2010Q1

REPORT INFORMATION
  Report Type: 
  Country: None (occurrence: None)
  Receive Date: 20100219
  Receipt Date: 20100215
  Transmission Date: 20100710
  Serious: Yes (Other)
  Sender: FDA-Public Use
  Company Number: BR-TEVA-224418ISR

PATIENT
  Age: 74 Year
  Sex: Female

DRUGS (11)
  1. AMIODARONE [Suspect]
  2. FLUNARIZINE [Suspect]
  3. LEVOTHYROXINE SODIUM [Concomitant]
  4. CAPTOPRIL [Concomitant]
  5. TRIMETAZIDINE [Concomitant]
  6. LEVODOPA W/BENSERAZIDE/ [Concomitant]
  7. BIPERIDEN HYDROCHLORIDE TAB [Concomitant]
  8. AMANTADINE HCL [Concomitant]
  9. TOLCAPONE [Concomitant]
  10. MEMANTINE [Concomitant]
  11. LEVODOPA [Concomitant]

REACTIONS (11)
  - AKINESIA [None]
  - APRAXIA [None]
  - CEREBRAL ATROPHY [None]
  - COGNITIVE DISORDER [None]
  - DYSPHAGIA [None]
  - GAZE PALSY [None]
  - OEDEMA [None]
  - PNEUMONIA ASPIRATION [None]
  - PROGRESSIVE SUPRANUCLEAR PALSY [None]
  - SOMNOLENCE [None]
  - TORTICOLLIS [None]
